FAERS Safety Report 5896318-6 (Version None)
Quarter: 2008Q3

REPORT INFORMATION
  Report Type: 
  Country: None (occurrence: None)
  Receive Date: 20080924
  Receipt Date: 20080612
  Transmission Date: 20090109
  Serious: Yes (Other)
  Sender: FDA-Public Use
  Company Number: US-ASTRAZENECA-2007UW19713

PATIENT
  Age: 605 Month
  Sex: Male
  Weight: 117.9 kg

DRUGS (5)
  1. SEROQUEL [Suspect]
     Indication: BIPOLAR DISORDER
     Dosage: VARIOUS DOSES, INCLUDING BUT NOT LIMITED TO 600 MG
     Route: 048
     Dates: start: 20050401, end: 20070501
  2. SEROQUEL [Suspect]
     Indication: DEPRESSION
     Dosage: VARIOUS DOSES, INCLUDING BUT NOT LIMITED TO 600 MG
     Route: 048
     Dates: start: 20050401, end: 20070501
  3. ABILIFY [Concomitant]
     Dates: start: 20070101
  4. ZOLOFT [Concomitant]
     Dosage: 100 MG - 150 MG
     Dates: start: 20050101
  5. INVEGA [Concomitant]
     Dates: start: 20070101

REACTIONS (3)
  - DIABETES MELLITUS [None]
  - ROTATOR CUFF REPAIR [None]
  - SUICIDAL BEHAVIOUR [None]
